FAERS Safety Report 5878182-4 (Version None)
Quarter: 2008Q3

REPORT INFORMATION
  Report Type: 
  Country: None (occurrence: None)
  Receive Date: 20080911
  Receipt Date: 20080903
  Transmission Date: 20090109
  Serious: Yes (Other)
  Sender: FDA-Public Use
  Company Number: PHHY2008CA15371

PATIENT
  Sex: Female

DRUGS (9)
  1. CLOZARIL [Suspect]
     Indication: PSYCHOTIC DISORDER
     Dosage: 350 MG, UNK
     Route: 048
     Dates: start: 20001003
  2. CLOZARIL [Suspect]
     Dosage: 250 MG, QHS
     Route: 048
  3. RISPERDAL [Concomitant]
     Indication: PSYCHOTIC DISORDER
     Dosage: 2 MG, UNK
  4. RISPERDAL [Concomitant]
     Dosage: 1.5 MG/DAY
  5. IMOVANE [Concomitant]
     Indication: SLEEP DISORDER
     Dosage: 7.5 MG, QHS
  6. CLONAZEPAM [Concomitant]
  7. ATIVAN [Concomitant]
     Indication: ANXIETY
     Dosage: 0.5 MG, UNK
  8. METFORMIN HCL [Concomitant]
     Indication: TYPE 2 DIABETES MELLITUS
  9. LORAZEPAM [Concomitant]
     Dosage: 0.5 MG/DAY

REACTIONS (23)
  - ANXIETY [None]
  - BIOPSY LIVER [None]
  - BLOOD THYROID STIMULATING HORMONE DECREASED [None]
  - COMPUTERISED TOMOGRAM ABNORMAL [None]
  - DRUG LEVEL INCREASED [None]
  - GLOMERULAR FILTRATION RATE DECREASED [None]
  - HAEMOGLOBIN DECREASED [None]
  - HALLUCINATION, AUDITORY [None]
  - HEPATIC CIRRHOSIS [None]
  - HEPATIC STEATOSIS [None]
  - HYPERTHYROIDISM [None]
  - MEAN CELL HAEMOGLOBIN DECREASED [None]
  - OBESITY [None]
  - PARANOIA [None]
  - PSYCHOTIC DISORDER [None]
  - RED BLOOD CELL COUNT DECREASED [None]
  - RED CELL DISTRIBUTION WIDTH INCREASED [None]
  - RENAL IMPAIRMENT [None]
  - SEDATION [None]
  - SLEEP DISORDER [None]
  - THYROID DISORDER [None]
  - TYPE 2 DIABETES MELLITUS [None]
  - WEIGHT DECREASED [None]
